FAERS Safety Report 14869067 (Version 1)
Quarter: 2018Q2

REPORT INFORMATION
  Report Type: Spontaneous
  Country: US (occurrence: US)
  Receive Date: 20180509
  Receipt Date: 20180509
  Transmission Date: 20180711
  Serious: Yes (Hospitalization)
  Sender: FDA-Public Use
  Company Number: US-009507513-1805USA000213

PATIENT
  Sex: Female

DRUGS (2)
  1. PROPOFOL. [Concomitant]
     Active Substance: PROPOFOL
     Dosage: UNK
  2. BRIDION [Suspect]
     Active Substance: SUGAMMADEX
     Indication: NEUROMUSCULAR BLOCKADE REVERSAL
     Dosage: 1 DOSE, UNK
     Route: 042

REACTIONS (1)
  - Bronchospasm [Recovered/Resolved]
